FAERS Safety Report 8506329-X (Version None)
Quarter: 2012Q3

REPORT INFORMATION
  Report Type: 
  Country: None (occurrence: None)
  Receive Date: 20120712
  Receipt Date: 20120706
  Transmission Date: 20120928
  Serious: Yes (Other)
  Sender: FDA-Public Use
  Company Number: CA-ROCHE-1086528

PATIENT
  Sex: Female

DRUGS (1)
  1. LUCENTIS [Suspect]
     Indication: RETINAL VEIN OCCLUSION
     Route: 050
     Dates: start: 20120525

REACTIONS (3)
  - RETINAL VEIN OCCLUSION [None]
  - VISION BLURRED [None]
  - ABNORMAL SENSATION IN EYE [None]
